FAERS Safety Report 21089658 (Version 1)
Quarter: 2022Q3

REPORT INFORMATION
  Report Type: Spontaneous
  Country: US (occurrence: US)
  Receive Date: 20220715
  Receipt Date: 20220715
  Transmission Date: 20221027
  Serious: No
  Sender: FDA-Public Use
  Company Number: US-AMGEN-USASP2022117121

PATIENT

DRUGS (15)
  1. INFLIXIMAB [Suspect]
     Active Substance: INFLIXIMAB
     Indication: Off label use
     Route: 065
  2. INFLIXIMAB [Suspect]
     Active Substance: INFLIXIMAB
     Indication: Uveitis
  3. INFLIXIMAB [Suspect]
     Active Substance: INFLIXIMAB
     Indication: Vasculitis
  4. INFLIXIMAB [Suspect]
     Active Substance: INFLIXIMAB
     Indication: Chorioretinitis
  5. INFLIXIMAB [Suspect]
     Active Substance: INFLIXIMAB
     Indication: Uveitis
  6. RITUXIMAB [Suspect]
     Active Substance: RITUXIMAB
     Indication: Autoimmune retinopathy
     Dosage: UNK
     Route: 065
  7. RITUXIMAB [Suspect]
     Active Substance: RITUXIMAB
     Indication: Off label use
  8. METHYLPREDNISOLONE;SUCCINIC ACID [Concomitant]
     Indication: Uveitis
     Route: 065
  9. METHYLPREDNISOLONE;SUCCINIC ACID [Concomitant]
     Indication: Retinal vasculitis
  10. METHYLPREDNISOLONE;SUCCINIC ACID [Concomitant]
     Indication: Autoimmune retinopathy
  11. METHYLPREDNISOLONE;SUCCINIC ACID [Concomitant]
     Indication: Juvenile idiopathic arthritis
  12. METHYLPREDNISOLONE;SUCCINIC ACID [Concomitant]
     Indication: Optic neuritis
  13. METHYLPREDNISOLONE;SUCCINIC ACID [Concomitant]
     Indication: Retinal vasculitis
  14. METHYLPREDNISOLONE;SUCCINIC ACID [Concomitant]
     Indication: Vasculitis
  15. METHYLPREDNISOLONE;SUCCINIC ACID [Concomitant]
     Indication: Optic neuritis

REACTIONS (1)
  - Off label use [Unknown]
